FAERS Safety Report 15946918 (Version 1)
Quarter: 2019Q1

REPORT INFORMATION
  Report Type: Report from Study
  Country: US (occurrence: US)
  Receive Date: 20190212
  Receipt Date: 20190212
  Transmission Date: 20190417
  Serious: Yes (Other)
  Sender: FDA-Public Use
  Company Number: US-ROCHE-2258014

PATIENT
  Age: 48 Year
  Sex: Female
  Weight: 108.05 kg

DRUGS (3)
  1. SIMVASTATIN. [Concomitant]
     Active Substance: SIMVASTATIN
     Indication: BLOOD CHOLESTEROL INCREASED
     Dosage: FOR 12 YEARS;
     Route: 048
  2. OCREVUS [Suspect]
     Active Substance: OCRELIZUMAB
     Indication: RELAPSING-REMITTING MULTIPLE SCLEROSIS
     Dosage: ONGOING: UNKNOWN
     Route: 042
     Dates: start: 201706
  3. METROPOLOL COMP [Concomitant]
     Dosage: STARTED 8 YRS AGO;
     Route: 048

REACTIONS (17)
  - Influenza like illness [Recovered/Resolved]
  - Sputum discoloured [Recovered/Resolved]
  - Pain [Not Recovered/Not Resolved]
  - Chest discomfort [Recovered/Resolved]
  - Hyperhidrosis [Recovered/Resolved]
  - Depression [Not Recovered/Not Resolved]
  - Chest pain [Recovered/Resolved]
  - Confusional state [Recovering/Resolving]
  - Cerebrovascular accident [Recovered/Resolved]
  - Dyspnoea [Recovered/Resolved]
  - Malaise [Unknown]
  - Cough [Recovered/Resolved]
  - Multiple sclerosis relapse [Not Recovered/Not Resolved]
  - Fatigue [Recovered/Resolved]
  - Upper respiratory tract infection [Recovering/Resolving]
  - Pyrexia [Recovered/Resolved]
  - Cerebral disorder [Not Recovered/Not Resolved]

NARRATIVE: CASE EVENT DATE: 201706
